FAERS Safety Report 23712234 (Version 1)
Quarter: 2024Q2

REPORT INFORMATION
  Report Type: Spontaneous
  Country: US (occurrence: None)
  Receive Date: 20240404
  Receipt Date: 20240404
  Transmission Date: 20240716
  Serious: Yes (Death)
  Sender: FDA-Public Use
  Company Number: None

PATIENT
  Age: 61 Year
  Sex: Female

DRUGS (2)
  1. PALONOSETRON [Suspect]
     Active Substance: PALONOSETRON
     Dosage: 0.25MG Q21D
  2. OXALIPLATIN [Suspect]
     Active Substance: OXALIPLATIN
     Dosage: 240MG  Q21D?

REACTIONS (1)
  - Death [None]
